FAERS Safety Report 12999219 (Version 1)
Quarter: 2016Q4

REPORT INFORMATION
  Report Type: Spontaneous
  Country: DE (occurrence: DE)
  Receive Date: 20161205
  Receipt Date: 20161205
  Transmission Date: 20170207
  Serious: Yes (Hospitalization, Other)
  Sender: FDA-Public Use
  Company Number: DE-ELI_LILLY_AND_COMPANY-DE201611008471

PATIENT
  Age: 56 Year
  Sex: Female

DRUGS (2)
  1. IMIPRAMINE                         /00053902/ [Suspect]
     Active Substance: IMIPRAMINE
     Indication: PRODUCT USED FOR UNKNOWN INDICATION
     Dosage: 50 MG, QD
     Route: 048
     Dates: start: 20160115
  2. ZYPREXA [Suspect]
     Active Substance: OLANZAPINE
     Indication: TACHYPHRENIA
     Dosage: 2.5 MG, QD
     Route: 048
     Dates: start: 20160410, end: 20160822

REACTIONS (6)
  - Off label use [Unknown]
  - Depression [Unknown]
  - Hyperphagia [Unknown]
  - Suicide attempt [Unknown]
  - Weight increased [Unknown]
  - Delirium [Unknown]

NARRATIVE: CASE EVENT DATE: 20160503
